FAERS Safety Report 22949154 (Version 10)
Quarter: 2024Q1

REPORT INFORMATION
  Report Type: Report from Study
  Country: CO (occurrence: CO)
  Receive Date: 20230915
  Receipt Date: 20240325
  Transmission Date: 20240410
  Serious: Yes (Hospitalization, Other)
  Sender: FDA-Public Use
  Company Number: CO-TAKEDA-2021TUS001128

PATIENT
  Age: 17 Year
  Sex: Female
  Weight: 58 kg

DRUGS (2)
  1. ICATIBANT [Suspect]
     Active Substance: ICATIBANT ACETATE
     Indication: Hereditary angioedema
     Dosage: 30 MILLIGRAM
     Route: 058
     Dates: start: 20201230
  2. ICATIBANT [Suspect]
     Active Substance: ICATIBANT ACETATE
     Indication: Hereditary angioedema
     Dosage: 30 MILLIGRAM
     Route: 058
     Dates: start: 20201230

REACTIONS (17)
  - Migraine [Recovered/Resolved]
  - Pain [Recovered/Resolved]
  - Suicidal ideation [Unknown]
  - Depressive symptom [Unknown]
  - Mood altered [Unknown]
  - Decreased appetite [Unknown]
  - Apathy [Unknown]
  - Depressed mood [Unknown]
  - Anxiety [Unknown]
  - Frustration tolerance decreased [Unknown]
  - Stress [Unknown]
  - Insomnia [Unknown]
  - Feeling of despair [Unknown]
  - Irritability [Unknown]
  - Crying [Unknown]
  - Social problem [Unknown]
  - Product prescribing error [Unknown]

NARRATIVE: CASE EVENT DATE: 20210729
